FAERS Safety Report 7727272-X (Version None)
Quarter: 2011Q3

REPORT INFORMATION
  Report Type: 
  Country: None (occurrence: None)
  Receive Date: 20110902
  Receipt Date: 20110830
  Transmission Date: 20111222
  Serious: Yes (Death, Hospitalization, Other)
  Sender: FDA-Public Use
  Company Number: US-ELI_LILLY_AND_COMPANY-US201109000204

PATIENT

DRUGS (6)
  1. CARBOPLATIN [Concomitant]
     Indication: NON-SMALL CELL LUNG CANCER STAGE III
  2. DEXAMETHASONE [Concomitant]
  3. FOLIC ACID [Concomitant]
  4. PEMETREXED [Suspect]
     Indication: NON-SMALL CELL LUNG CANCER STAGE III
     Dosage: 500 MG/M2, UNK
  5. VITAMIN B-12 [Concomitant]
  6. CETUXIMAB [Concomitant]
     Indication: NON-SMALL CELL LUNG CANCER STAGE III

REACTIONS (4)
  - RESPIRATORY FAILURE [None]
  - PNEUMONITIS [None]
  - PULMONARY EMBOLISM [None]
  - NEOPLASM PROGRESSION [None]
